FAERS Safety Report 8495148-9 (Version None)
Quarter: 2012Q3

REPORT INFORMATION
  Report Type: 
  Country: None (occurrence: None)
  Receive Date: 20120702
  Receipt Date: 20120702
  Transmission Date: 20120928
  Serious: Yes (Disabling)
  Sender: FDA-Public Use
  Company Number: None

PATIENT
  Age: 85 Year
  Sex: Female

DRUGS (1)
  1. FOSAMAX [Suspect]
     Dosage: ONCE A DAY PO
     Route: 048
     Dates: start: 20080101, end: 20090101

REACTIONS (1)
  - OSTEONECROSIS [None]
